FAERS Safety Report 14384607 (Version 1)
Quarter: 2018Q1

REPORT INFORMATION
  Report Type: Spontaneous
  Country: US (occurrence: US)
  Receive Date: 20180115
  Receipt Date: 20180115
  Transmission Date: 20180509
  Serious: No
  Sender: FDA-Public Use
  Company Number: US-GALDERMA-US17012531

PATIENT
  Age: 18 Year
  Sex: Female

DRUGS (1)
  1. EPIDUO [Suspect]
     Active Substance: ADAPALENE\BENZOYL PEROXIDE
     Indication: ACNE
     Dosage: 0.1% / 2.5 %
     Route: 061
     Dates: end: 20171119

REACTIONS (3)
  - Erythema [Unknown]
  - Skin burning sensation [Unknown]
  - Blister [Unknown]

NARRATIVE: CASE EVENT DATE: 201711
